FAERS Safety Report 24586164 (Version 1)
Quarter: 2024Q4

REPORT INFORMATION
  Report Type: Report from Study
  Country: GB (occurrence: GB)
  Receive Date: 20241106
  Receipt Date: 20241106
  Transmission Date: 20250115
  Serious: Yes (Hospitalization, Other)
  Sender: SANDOZ
  Company Number: GB-SANDOZ-SDZ2023GB019352

PATIENT
  Sex: Female

DRUGS (2)
  1. OMNITROPE [Suspect]
     Active Substance: SOMATROPIN
     Indication: Hypopituitarism
     Dosage: 0.3 MG, QD
     Route: 058
  2. OMNITROPE [Suspect]
     Active Substance: SOMATROPIN
     Indication: Hyperpituitarism

REACTIONS (6)
  - Fall [Unknown]
  - Brain neoplasm [Not Recovered/Not Resolved]
  - Adverse drug reaction [Unknown]
  - Memory impairment [Unknown]
  - Product storage error [Unknown]
  - Product dose omission issue [Unknown]
